FAERS Safety Report 10890323 (Version 2)
Quarter: 2015Q2

REPORT INFORMATION
  Report Type: Spontaneous
  Country: US (occurrence: US)
  Receive Date: 20150305
  Receipt Date: 20150401
  Transmission Date: 20150821
  Serious: No
  Sender: FDA-Public Use
  Company Number: US-009507513-1502USA011653

PATIENT
  Sex: Female

DRUGS (1)
  1. NASONEX [Suspect]
     Active Substance: MOMETASONE FUROATE
     Indication: ALLERGIC SINUSITIS
     Dosage: 1 DF, QPM (ONE SPRAY IN EACH NOSTRIL DAILY AT NIGHT)
     Route: 045

REACTIONS (3)
  - Macular degeneration [Unknown]
  - Product quality issue [Unknown]
  - Prescribed underdose [Unknown]
